FAERS Safety Report 17983628 (Version 1)
Quarter: 2020Q3

REPORT INFORMATION
  Report Type: Spontaneous
  Country: FR (occurrence: FR)
  Receive Date: 20200706
  Receipt Date: 20200706
  Transmission Date: 20201103
  Serious: Yes (Other)
  Sender: FDA-Public Use
  Company Number: FR-TEVA-2020-FR-1795572

PATIENT
  Age: 45 Year
  Sex: Female

DRUGS (6)
  1. TRAMADOL BASE [Suspect]
     Active Substance: TRAMADOL
     Route: 065
  2. PRAZEPAM [Suspect]
     Active Substance: PRAZEPAM
     Dosage: 30 MG
     Route: 048
     Dates: start: 202002
  3. NORSET [Suspect]
     Active Substance: MIRTAZAPINE
     Dosage: 45 MG
     Route: 048
     Dates: start: 202002
  4. VALIUM [Suspect]
     Active Substance: DIAZEPAM
     Dosage: 10 MG
     Route: 048
  5. THERALENE [Suspect]
     Active Substance: TRIMEPRAZINE
     Route: 048
     Dates: start: 202002
  6. SERESTA 50 MG, COMPRIME SECABLE [Suspect]
     Active Substance: OXAZEPAM
     Dosage: 150 MG
     Route: 048
     Dates: start: 2020

REACTIONS (1)
  - Drug dependence [Not Recovered/Not Resolved]

NARRATIVE: CASE EVENT DATE: 2020
